FAERS Safety Report 17510452 (Version 3)
Quarter: 2020Q1

REPORT INFORMATION
  Report Type: Report from Study
  Country: US (occurrence: US)
  Receive Date: 20200306
  Receipt Date: 20200324
  Transmission Date: 20200409
  Serious: Yes (Death)
  Sender: FDA-Public Use
  Company Number: US-VERASTEM-2020-00044

PATIENT

DRUGS (2)
  1. IPI-145 [Suspect]
     Active Substance: DUVELISIB
     Indication: RICHTER^S SYNDROME
     Dosage: UNK UNK, UNKNOWN
     Route: 048
     Dates: start: 20200213, end: 20200224
  2. VENETOCLAX. [Suspect]
     Active Substance: VENETOCLAX
     Indication: RICHTER^S SYNDROME
     Dosage: UNK UNK, UNKNOWN
     Route: 048
     Dates: start: 20200213, end: 20200224

REACTIONS (1)
  - Hepatic failure [Fatal]

NARRATIVE: CASE EVENT DATE: 20200224
